FAERS Safety Report 8227296-2 (Version None)
Quarter: 2012Q1

REPORT INFORMATION
  Report Type: 
  Country: None (occurrence: None)
  Receive Date: 20120322
  Receipt Date: 20120319
  Transmission Date: 20120608
  Serious: Yes (Death)
  Sender: FDA-Public Use
  Company Number: PHHY2012AR024148

PATIENT
  Sex: Male

DRUGS (1)
  1. EXELON [Suspect]
     Indication: DEMENTIA ALZHEIMER'S TYPE
     Dosage: 5 CM (4.6MG/24HOURS), TWO PATCHES DAILY
     Route: 062
     Dates: start: 20110101

REACTIONS (3)
  - INCORRECT DOSE ADMINISTERED [None]
  - INFARCTION [None]
  - CARDIO-RESPIRATORY ARREST [None]
